FAERS Safety Report 12679868 (Version 1)
Quarter: 2016Q3

REPORT INFORMATION
  Report Type: Spontaneous
  Country: US (occurrence: US)
  Receive Date: 20160824
  Receipt Date: 20160824
  Transmission Date: 20161109
  Serious: No
  Sender: FDA-Public Use
  Company Number: US-JNJFOC-20160713848

PATIENT
  Sex: Male

DRUGS (1)
  1. HALDOL [Suspect]
     Active Substance: HALOPERIDOL
     Indication: PAIN
     Route: 065

REACTIONS (4)
  - Drug tolerance [Unknown]
  - Incorrect dose administered [Unknown]
  - Product used for unknown indication [Unknown]
  - Off label use [Unknown]
